FAERS Safety Report 16480021 (Version 1)
Quarter: 2019Q2

REPORT INFORMATION
  Report Type: Spontaneous
  Country: HK (occurrence: HK)
  Receive Date: 20190626
  Receipt Date: 20190626
  Transmission Date: 20190711
  Serious: Yes (Other)
  Sender: FDA-Public Use
  Company Number: PHHY2019HK141286

PATIENT
  Age: 59 Year
  Sex: Male

DRUGS (3)
  1. MEROPENEM. [Suspect]
     Active Substance: MEROPENEM
     Indication: PRODUCT USED FOR UNKNOWN INDICATION
     Route: 065
  2. OFLOXACIN. [Suspect]
     Active Substance: OFLOXACIN
     Indication: OTITIS MEDIA CHRONIC
     Route: 061
  3. CIPROFLOXACIN. [Suspect]
     Active Substance: CIPROFLOXACIN
     Indication: OTITIS MEDIA CHRONIC
     Route: 048

REACTIONS (7)
  - Otitis media chronic [Unknown]
  - Epistaxis [Unknown]
  - Disease progression [Unknown]
  - Otorrhoea [Not Recovered/Not Resolved]
  - Vascular pseudoaneurysm [Unknown]
  - Cranial nerve palsies multiple [Not Recovered/Not Resolved]
  - Otitis externa [Unknown]
